FAERS Safety Report 5469585-0 (Version None)
Quarter: 2007Q3

REPORT INFORMATION
  Report Type: 
  Country: None (occurrence: None)
  Receive Date: 20070927
  Receipt Date: 20070921
  Transmission Date: 20080115
  Serious: Yes (Hospitalization)
  Sender: FDA-Public Use
  Company Number: AU-AVENTIS-200718770GDDC

PATIENT
  Age: 29 Year
  Sex: Male

DRUGS (4)
  1. LANTUS [Suspect]
     Route: 058
     Dates: start: 20060801
  2. AUTOPEN INSULIN INJECTION PEN [Suspect]
  3. NOVORAPID [Concomitant]
     Dosage: DOSE: 4-8
     Route: 058
  4. OPHTHALMOLOGICALS [Concomitant]

REACTIONS (1)
  - EYE OPERATION [None]
